FAERS Safety Report 15863287 (Version 4)
Quarter: 2019Q2

REPORT INFORMATION
  Report Type: Spontaneous
  Country: IL (occurrence: IL)
  Receive Date: 20190124
  Receipt Date: 20190422
  Transmission Date: 20190711
  Serious: Yes (Other)
  Sender: FDA-Public Use
  Company Number: IL-IPSEN BIOPHARMACEUTICALS, INC.-2019-00764

PATIENT
  Age: 5 Year
  Sex: Female
  Weight: 7.5 kg

DRUGS (2)
  1. INCRELEX [Suspect]
     Active Substance: MECASERMIN
     Indication: INSULIN-LIKE GROWTH FACTOR DECREASED
     Dosage: 0.12 MG/KG (0.9 MG)
     Route: 065
     Dates: start: 20190107
  2. INCRELEX [Suspect]
     Active Substance: MECASERMIN
     Route: 065

REACTIONS (4)
  - Facial paralysis [Recovered/Resolved]
  - Hypoglycaemia [Recovered/Resolved]
  - Abdominal pain [Recovered/Resolved]
  - Overdose [Unknown]

NARRATIVE: CASE EVENT DATE: 20190107
